FAERS Safety Report 5970417-2 (Version None)
Quarter: 2008Q4

REPORT INFORMATION
  Report Type: 
  Country: None (occurrence: None)
  Receive Date: 20081126
  Receipt Date: 20081119
  Transmission Date: 20090506
  Serious: Yes (Other)
  Sender: FDA-Public Use
  Company Number: US-PFIZER INC-2008098839

PATIENT
  Sex: Female

DRUGS (11)
  1. LIPITOR [Suspect]
     Dosage: DAILY DOSE:10MG
     Dates: start: 20040101, end: 20060912
  2. KETEK [Suspect]
     Indication: SINUSITIS
     Dosage: DAILY DOSE:400MG
     Dates: start: 20060313, end: 20060323
  3. CIPROFLOXACIN [Suspect]
     Indication: URINARY TRACT INFECTION
     Dates: start: 20060405, end: 20060410
  4. LEXAPRO [Concomitant]
  5. ATIVAN [Concomitant]
  6. CYTOMEL [Concomitant]
  7. LUNESTA [Concomitant]
  8. SYNTHROID [Concomitant]
  9. AXERT [Concomitant]
     Indication: MIGRAINE
     Dates: start: 20060405
  10. NASACORT AQ [Concomitant]
     Dates: start: 20060405
  11. AUGMENTIN '125' [Concomitant]
     Dates: start: 20060501

REACTIONS (14)
  - ABDOMINAL PAIN UPPER [None]
  - ARTHRALGIA [None]
  - BACK PAIN [None]
  - BLOOD URINE PRESENT [None]
  - CHROMATURIA [None]
  - EOSINOPHILIA [None]
  - FATIGUE [None]
  - FEELING HOT [None]
  - HEPATITIS [None]
  - LIVER FUNCTION TEST ABNORMAL [None]
  - OCULAR ICTERUS [None]
  - PRURITUS [None]
  - SINUSITIS [None]
  - URINARY TRACT INFECTION [None]
